FAERS Safety Report 23878658 (Version 2)
Quarter: 2024Q2

REPORT INFORMATION
  Report Type: Report from Study
  Country: US (occurrence: US)
  Receive Date: 20240521
  Receipt Date: 20240613
  Transmission Date: 20240715
  Serious: Yes (Other)
  Sender: FDA-Public Use
  Company Number: US-ARGENX-2024-ARGX-US003296

PATIENT

DRUGS (2)
  1. VYVGART [Suspect]
     Active Substance: EFGARTIGIMOD ALFA-FCAB
     Indication: Product used for unknown indication
     Dosage: UNK
     Route: 042
  2. OZEMPIC [Suspect]
     Active Substance: SEMAGLUTIDE
     Indication: Product used for unknown indication
     Dosage: UNK
     Route: 065

REACTIONS (7)
  - Knee arthroplasty [Unknown]
  - Drooling [Unknown]
  - Arthralgia [Unknown]
  - Sensitivity to weather change [Unknown]
  - Weight decreased [Unknown]
  - Glycosylated haemoglobin decreased [Unknown]
  - Nausea [Unknown]
